FAERS Safety Report 5016314-0 (Version None)
Quarter: 2006Q2

REPORT INFORMATION
  Report Type: 
  Country: None (occurrence: None)
  Receive Date: 20060424
  Receipt Date: 20060110
  Transmission Date: 20061013
  Serious: Yes (Other)
  Sender: FDA-Public Use
  Company Number: 1781-255-2

PATIENT
  Age: 44 Year
  Sex: Female
  Weight: 81.6475 kg

DRUGS (2)
  1. DEXFERRUM [Suspect]
     Indication: IRON DEFICIENCY
     Dosage: 100 MG PER 2 ML
     Dates: start: 20050916
  2. DEXFERRUM [Suspect]
     Indication: MENORRHAGIA
     Dosage: 100 MG PER 2 ML
     Dates: start: 20050916

REACTIONS (1)
  - HYPERSENSITIVITY [None]
